FAERS Safety Report 6902563-0 (Version None)
Quarter: 2010Q3

REPORT INFORMATION
  Report Type: 
  Country: None (occurrence: None)
  Receive Date: 20100803
  Receipt Date: 20080530
  Transmission Date: 20110219
  Serious: Yes (Other)
  Sender: FDA-Public Use
  Company Number: US-PFIZER INC-2008043872

PATIENT
  Sex: Female

DRUGS (1)
  1. LYRICA [Suspect]
     Indication: POST HERPETIC NEURALGIA
     Dates: start: 20080101

REACTIONS (4)
  - DRUG INEFFECTIVE [None]
  - FATIGUE [None]
  - METRORRHAGIA [None]
  - SOMNOLENCE [None]
